FAERS Safety Report 24813659 (Version 1)
Quarter: 2025Q1

REPORT INFORMATION
  Report Type: Spontaneous
  Country: CN (occurrence: CN)
  Receive Date: 20250107
  Receipt Date: 20250107
  Transmission Date: 20250409
  Serious: Yes (Other)
  Sender: NOVARTIS
  Company Number: CN-002147023-NVSC2024CN247871

PATIENT
  Age: 80 Year
  Sex: Female

DRUGS (1)
  1. SACUBITRIL\VALSARTAN [Suspect]
     Active Substance: SACUBITRIL\VALSARTAN
     Indication: Cardiac failure
     Dosage: 50 MG, BID
     Route: 048
     Dates: start: 20241130, end: 20241203

REACTIONS (4)
  - Blood pressure decreased [Recovering/Resolving]
  - Tricuspid valve incompetence [Unknown]
  - Arrhythmia [Unknown]
  - Aortic valve disease [Unknown]

NARRATIVE: CASE EVENT DATE: 20241203
